FAERS Safety Report 20209864 (Version 1)
Quarter: 2021Q4

REPORT INFORMATION
  Report Type: Spontaneous
  Country: DE (occurrence: DE)
  Receive Date: 20211221
  Receipt Date: 20211221
  Transmission Date: 20220303
  Serious: Yes (Disabling, Other)
  Sender: FDA-Public Use
  Company Number: DE-CHEPLA-2021004683

PATIENT
  Age: 51 Year
  Sex: Male

DRUGS (7)
  1. ETOPOSIDE PHOSPHATE [Suspect]
     Active Substance: ETOPOSIDE PHOSPHATE
     Indication: T-cell lymphoma
     Dosage: DAY 1-3, 7 CYCLES
     Route: 042
  2. PREDNISOLONE [Suspect]
     Active Substance: PREDNISOLONE
     Indication: T-cell lymphoma
     Dosage: DAY 1-5, 7 CYCLES?DAILY DOSE: 100 MILLIGRAM
     Route: 048
  3. RITUXIMAB [Suspect]
     Active Substance: RITUXIMAB
     Indication: T-cell lymphoma
     Dosage: DAY 1, 7 CYCLES
     Route: 042
  4. DOXORUBICIN [Suspect]
     Active Substance: DOXORUBICIN
     Indication: T-cell lymphoma
     Dosage: DAY 1, 7 CYCLES
     Route: 042
  5. VINCRISTINE [Suspect]
     Active Substance: VINCRISTINE
     Indication: T-cell lymphoma
     Dosage: DAY 1, 7 CYCLES
     Route: 042
  6. CYCLOPHOSPHAMIDE [Suspect]
     Active Substance: CYCLOPHOSPHAMIDE
     Indication: T-cell lymphoma
     Dosage: DAY 1, 7 CYCLES
     Route: 042
  7. PEGFILGRASTIM [Suspect]
     Active Substance: PEGFILGRASTIM
     Indication: T-cell lymphoma
     Dosage: DAY 4, 7 CYCLES
     Route: 058

REACTIONS (3)
  - Prostaglandin analogue periorbitopathy [Unknown]
  - Optic ischaemic neuropathy [Unknown]
  - Retinal artery occlusion [Unknown]
